FAERS Safety Report 4541263-1 (Version None)
Quarter: 2004Q4

REPORT INFORMATION
  Report Type: 
  Country: None (occurrence: None)
  Receive Date: 20041228
  Receipt Date: 20041213
  Transmission Date: 20050328
  Serious: Yes (Other)
  Sender: FDA-Public Use
  Company Number: US-2004-036638

PATIENT
  Age: 45 Year
  Sex: Female
  Weight: 110 kg

DRUGS (2)
  1. REFLUDAN [Suspect]
     Indication: HEPARIN-INDUCED THROMBOCYTOPENIA
     Dosage: SEE IMAGE
  2. REFLUDAN [Suspect]
     Indication: HEPARIN-INDUCED THROMBOCYTOPENIA
     Dosage: SEE IMAGE

REACTIONS (6)
  - ACTIVATED PARTIAL THROMBOPLASTIN TIME PROLONGED [None]
  - ANAPHYLACTIC REACTION [None]
  - CHEST PAIN [None]
  - DRUG CLEARANCE DECREASED [None]
  - DRUG SPECIFIC ANTIBODY PRESENT [None]
  - HYPOTENSION [None]
